FAERS Safety Report 8005629-X (Version None)
Quarter: 2011Q4

REPORT INFORMATION
  Report Type: 
  Country: None (occurrence: None)
  Receive Date: 20111223
  Receipt Date: 20111214
  Transmission Date: 20120403
  Serious: Yes (Other)
  Sender: FDA-Public Use
  Company Number: AT-BRISTOL-MYERS SQUIBB COMPANY-16281289

PATIENT
  Age: 27 Year
  Sex: Female

DRUGS (3)
  1. QUETIAPINE [Concomitant]
     Route: 048
     Dates: start: 20070101
  2. ABILIFY [Suspect]
     Indication: PSYCHOTIC DISORDER
     Route: 048
     Dates: start: 20080101
  3. SERTRALINE HYDROCHLORIDE [Concomitant]
     Route: 048
     Dates: start: 20070101

REACTIONS (1)
  - THROMBOCYTOSIS [None]
